FAERS Safety Report 9342997 (Version 4)
Quarter: 2013Q3

REPORT INFORMATION
  Report Type: Report from Study
  Country: CA (occurrence: CA)
  Receive Date: 20130611
  Receipt Date: 20130926
  Transmission Date: 20140515
  Serious: Yes (Death, Hospitalization)
  Sender: FDA-Public Use
  Company Number: CA-TEVA-355514USA

PATIENT
  Age: 63 Year
  Sex: Male
  Weight: 75.1 kg

DRUGS (14)
  1. BENDAMUSTINE [Suspect]
     Indication: NON-HODGKIN^S LYMPHOMA UNSPECIFIED HISTOLOGY INDOLENT
     Dosage: CYCLE 1
     Route: 042
     Dates: start: 20120718, end: 20120719
  2. DEXAMETHASONE [Concomitant]
     Indication: NAUSEA
     Dosage: 4 MILLIGRAM DAILY;
     Route: 048
     Dates: start: 20120813, end: 20120815
  3. DEXAMETHASONE [Concomitant]
     Dosage: 2 MILLIGRAM DAILY;
     Route: 048
     Dates: start: 20120816, end: 20120816
  4. INSULIN NOVOLIN 70/30 [Concomitant]
     Indication: DIABETES MELLITUS
     Dosage: 32 UNITS IN MORNING AND 18 UNITS IN EVENING
     Route: 058
     Dates: start: 1996
  5. ENOXAPARIN [Concomitant]
     Indication: PULMONARY EMBOLISM
     Dosage: 100 MILLIGRAM DAILY;
     Route: 058
     Dates: start: 201111, end: 20120817
  6. METFORMIN [Concomitant]
     Indication: DIABETES MELLITUS
     Dosage: 1500 MILLIGRAM DAILY; 1000 MG EVERY MORNING, 500 MG EVERY NOON, 1000 MG EVERY EVENING
     Route: 048
     Dates: start: 1996, end: 20120817
  7. RAMIPRIL [Concomitant]
     Indication: HYPERTENSION
     Dosage: 5 MILLIGRAM DAILY;
     Route: 048
     Dates: start: 2004
  8. QUININE SULFATE [Concomitant]
     Indication: MUSCLE SPASMS
     Dosage: AT BEDTIME
     Route: 048
     Dates: start: 201201
  9. ATORVASTATIN [Concomitant]
     Indication: HYPERLIPIDAEMIA
     Dosage: 40 MILLIGRAM DAILY;
     Route: 048
     Dates: start: 2004
  10. METOPROLOL [Concomitant]
     Indication: HYPERTENSION
     Dosage: .5 DOSAGE FORMS DAILY;
     Route: 048
     Dates: start: 2004
  11. PANTOPRAZOLE [Concomitant]
     Indication: GASTROOESOPHAGEAL REFLUX DISEASE
     Dosage: 40 MILLIGRAM DAILY;
     Route: 048
     Dates: start: 2002
  12. ALLOPURINOL [Concomitant]
     Dosage: 300 MILLIGRAM DAILY;
     Route: 048
     Dates: start: 20120816
  13. ENOXAPARIN [Concomitant]
     Indication: THROMBOSIS PROPHYLAXIS
     Dosage: 40 MILLIGRAM DAILY;
     Route: 058
     Dates: start: 20120818
  14. LASIX [Concomitant]
     Indication: OEDEMA
     Dosage: 20 MILLIGRAM DAILY;
     Route: 048
     Dates: start: 2004

REACTIONS (3)
  - Disease progression [Fatal]
  - Pyrexia [Recovered/Resolved]
  - Vomiting [Recovering/Resolving]
